FAERS Safety Report 19277859 (Version 1)
Quarter: 2021Q2

REPORT INFORMATION
  Report Type: Spontaneous
  Country: US (occurrence: US)
  Receive Date: 20210520
  Receipt Date: 20210520
  Transmission Date: 20210717
  Serious: Yes (Other)
  Sender: FDA-Public Use
  Company Number: US-ASTRAZENECA-2021A439100

PATIENT
  Age: 28600 Day
  Sex: Female
  Weight: 60.3 kg

DRUGS (16)
  1. PULMICORT TURBUHALER [Concomitant]
     Active Substance: BUDESONIDE
  2. BENZONATE [Concomitant]
     Active Substance: BENZONATATE
  3. PEPCID [Concomitant]
     Active Substance: FAMOTIDINE
  4. SOLU?MEDROL [Concomitant]
     Active Substance: METHYLPREDNISOLONE SODIUM SUCCINATE
  5. BREZTRI AEROSPHERE [Suspect]
     Active Substance: BUDESONIDE\FORMOTEROL\GLYCOPYRRONIUM
     Indication: CHRONIC OBSTRUCTIVE PULMONARY DISEASE
     Dosage: UNKNOWN
     Route: 055
     Dates: start: 20210506, end: 20210513
  6. DILTIAZEM. [Concomitant]
     Active Substance: DILTIAZEM
  7. VIBRAMYCIN [Concomitant]
     Active Substance: DOXYCYCLINE
  8. LINZESS [Concomitant]
     Active Substance: LINACLOTIDE
  9. IPRATROPIUM/SALBUTAMOL [Concomitant]
     Active Substance: ALBUTEROL\IPRATROPIUM BROMIDE
  10. TYLENOL [Concomitant]
     Active Substance: ACETAMINOPHEN
  11. PRAVACHOL [Concomitant]
     Active Substance: PRAVASTATIN SODIUM
  12. ZOFRAN [Concomitant]
     Active Substance: ONDANSETRON HYDROCHLORIDE
  13. SIMETHICONE (DIMETHICONE) [Concomitant]
     Active Substance: DIMETHICONE
  14. DOCUSATE CALCIUM. [Concomitant]
     Active Substance: DOCUSATE CALCIUM
  15. THEOPHYLLINE [Concomitant]
     Active Substance: THEOPHYLLINE ANHYDROUS
  16. SENNA LAXATIVE [Concomitant]
     Active Substance: SENNOSIDES

REACTIONS (2)
  - Erythema [Recovered/Resolved]
  - Swollen tongue [Recovered/Resolved]

NARRATIVE: CASE EVENT DATE: 20210506
